FAERS Safety Report 7675810-8 (Version None)
Quarter: 2011Q3

REPORT INFORMATION
  Report Type: 
  Country: None (occurrence: None)
  Receive Date: 20110810
  Receipt Date: 20110801
  Transmission Date: 20111222
  Serious: Yes (Hospitalization, Disabling)
  Sender: FDA-Public Use
  Company Number: AU-ASTRAZENECA-2011SE45925

PATIENT
  Age: 43 Year
  Sex: Female
  Weight: 80 kg

DRUGS (6)
  1. DIAZEPAM [Concomitant]
     Indication: ANXIETY
     Route: 048
     Dates: start: 20110101
  2. ZIPRASIDONE HYDROCHLORIDE [Suspect]
     Indication: BIPOLAR DISORDER
     Route: 048
     Dates: start: 20110515, end: 20110530
  3. LITHIUM CARBONATE [Suspect]
     Indication: BIPOLAR DISORDER
     Route: 048
     Dates: start: 20040101
  4. SEROQUEL [Suspect]
     Route: 048
  5. LEVOTHYROXINE SODIUM [Concomitant]
     Indication: HYPOTHYROIDISM
     Dosage: 200 MG MONDAY TO SATURDAY
     Route: 048
     Dates: start: 20050101
  6. STILNOX CR [Concomitant]
     Indication: SLEEP DISORDER
     Route: 048
     Dates: start: 20110101

REACTIONS (5)
  - MANIA [None]
  - ANTISOCIAL BEHAVIOUR [None]
  - NAUSEA [None]
  - DEPRESSION [None]
  - TREMOR [None]
